FAERS Safety Report 26210152 (Version 1)
Quarter: 2025Q4

REPORT INFORMATION
  Report Type: Spontaneous
  Country: US (occurrence: US)
  Receive Date: 20251229
  Receipt Date: 20251229
  Transmission Date: 20260118
  Serious: Yes (Other)
  Sender: MALLINCKRODT
  Company Number: US-MALLINCKRODT-MNK202508286

PATIENT
  Age: 4 Month
  Sex: Male

DRUGS (12)
  1. NITRIC OXIDE [Suspect]
     Active Substance: NITRIC OXIDE
     Indication: Pulmonary arterial hypertension
     Dosage: UNKNOWN
     Route: 055
  2. NITRIC OXIDE [Suspect]
     Active Substance: NITRIC OXIDE
     Dosage: 40 PPM
     Route: 055
  3. OXYGEN [Concomitant]
     Active Substance: OXYGEN
     Dosage: UNKNOWN
  4. SILDENAFIL [Concomitant]
     Active Substance: SILDENAFIL
     Dosage: UNKNOWN
  5. SILDENAFIL [Concomitant]
     Active Substance: SILDENAFIL
     Dosage: UNKNOWN (WEANING)
  6. EPINEPHRINE [Concomitant]
     Active Substance: EPINEPHRINE
     Dosage: UNKNOWN
  7. TREPROSTINIL [Concomitant]
     Active Substance: TREPROSTINIL
     Dosage: UNKNOWN
     Route: 058
  8. TREPROSTINIL [Concomitant]
     Active Substance: TREPROSTINIL
     Dosage: UNKNOWN (WEANING)
  9. RIOCIGUAT [Concomitant]
     Active Substance: RIOCIGUAT
     Dosage: UNKNOWN
  10. EPOPROSTENOL [Concomitant]
     Active Substance: EPOPROSTENOL
     Dosage: UNKNOWN
     Route: 055
  11. EPOPROSTENOL [Concomitant]
     Active Substance: EPOPROSTENOL
     Dosage: UNKNOWN
  12. EPOPROSTENOL [Concomitant]
     Active Substance: EPOPROSTENOL
     Dosage: UNKNOWN
     Route: 042

REACTIONS (4)
  - Pulmonary hypertensive crisis [Unknown]
  - Hypoxia [Unknown]
  - Diastolic dysfunction [Unknown]
  - Product use issue [Unknown]
